FAERS Safety Report 26001206 (Version 1)
Quarter: 2025Q4

REPORT INFORMATION
  Report Type: Spontaneous
  Country: CN (occurrence: CN)
  Receive Date: 20251105
  Receipt Date: 20251105
  Transmission Date: 20260117
  Serious: Yes (Hospitalization, Disabling)
  Sender: PFIZER
  Company Number: CN-PFIZER INC-PV202500129441

PATIENT
  Age: 16 Year
  Sex: Male

DRUGS (4)
  1. METHOTREXATE SODIUM [Suspect]
     Active Substance: METHOTREXATE SODIUM
     Indication: Acute lymphocytic leukaemia (in remission)
     Dosage: 6 G, 1X/DAY
     Route: 041
     Dates: start: 20251013, end: 20251013
  2. VINDESINE [Concomitant]
     Active Substance: VINDESINE
     Indication: Acute lymphocytic leukaemia (in remission)
     Dosage: 4 MG
     Dates: start: 20251014, end: 20251014
  3. VINDESINE [Concomitant]
     Active Substance: VINDESINE
     Dosage: 4 MG
     Dates: start: 20251021, end: 20251021
  4. DEXAMETHASONE [Concomitant]
     Active Substance: DEXAMETHASONE
     Indication: Acute lymphocytic leukaemia (in remission)
     Dosage: 18 MG
     Dates: start: 20251014, end: 20251027

REACTIONS (2)
  - Blood creatinine increased [Recovering/Resolving]
  - Chemotherapeutic drug level increased [Recovering/Resolving]

NARRATIVE: CASE EVENT DATE: 20251015
